FAERS Safety Report 6596667-2 (Version None)
Quarter: 2010Q1

REPORT INFORMATION
  Report Type: 
  Country: None (occurrence: None)
  Receive Date: 20100223
  Receipt Date: 20091130
  Transmission Date: 20100710
  Serious: Yes (Other)
  Sender: FDA-Public Use
  Company Number: US-BAYER-200916826NA

PATIENT
  Age: 53 Year
  Sex: Female
  Weight: 59 kg

DRUGS (28)
  1. MAGNEVIST [Suspect]
     Indication: NUCLEAR MAGNETIC RESONANCE IMAGING BRAIN
     Dosage: TOTAL DAILY DOSE: 16 ML
     Route: 042
     Dates: start: 20010927, end: 20010927
  2. MAGNEVIST [Suspect]
     Dates: start: 20030911, end: 20030911
  3. MAGNEVIST [Suspect]
     Dosage: TOTAL DAILY DOSE: 13 ML
     Dates: start: 20061031, end: 20061031
  4. UNSPECIFIED GADOLINIUM BASED CONTRAST AGENT [Suspect]
     Indication: NUCLEAR MAGNETIC RESONANCE IMAGING
     Dates: start: 19960627, end: 19960627
  5. UNSPECIFIED GADOLINIUM BASED CONTRAST AGENT [Suspect]
     Dates: start: 19960725, end: 19960725
  6. UNSPECIFIED GADOLINIUM BASED CONTRAST AGENT [Suspect]
     Dates: start: 19980107, end: 19980107
  7. PROCARDIA [Concomitant]
  8. CLONIDINE [Concomitant]
  9. EPOEITIN [Concomitant]
  10. REQUIP [Concomitant]
  11. MEGACE [Concomitant]
  12. AMIODARONE HCL [Concomitant]
  13. METOPROLOL TARTRATE [Concomitant]
  14. ZOFRAN [Concomitant]
  15. LEVOTHYROXINE SODIUM [Concomitant]
  16. RYTHMOL [Concomitant]
  17. DICYCOLMINE [Concomitant]
  18. PHOSLO [Concomitant]
  19. SEVELAMAR [Concomitant]
  20. WARFARIN SODIUM [Concomitant]
  21. TOPROL-XL [Concomitant]
     Dates: end: 20070101
  22. ASPIRIN [Concomitant]
  23. ENOXAPARIN SODIUM [Concomitant]
  24. NEPHROCAPS [Concomitant]
  25. CALCIUM ACETATE [Concomitant]
  26. PARACALCITOL [Concomitant]
  27. BELLADONNA ALK-PHENOBARBITAL [Concomitant]
  28. CALCITRIOL [Concomitant]

REACTIONS (28)
  - ARTHRALGIA [None]
  - ASTHENIA [None]
  - BACK PAIN [None]
  - CALCINOSIS [None]
  - CYST [None]
  - DEFORMITY [None]
  - EMOTIONAL DISTRESS [None]
  - FIBROSIS [None]
  - GAIT DISTURBANCE [None]
  - HAIR TEXTURE ABNORMAL [None]
  - HYPOAESTHESIA [None]
  - LOWER EXTREMITY MASS [None]
  - LYMPHADENOPATHY [None]
  - MOBILITY DECREASED [None]
  - MUSCULOSKELETAL STIFFNESS [None]
  - NEPHROGENIC SYSTEMIC FIBROSIS [None]
  - OEDEMA PERIPHERAL [None]
  - PAIN [None]
  - PARAESTHESIA [None]
  - PRURITUS [None]
  - RASH PAPULAR [None]
  - SKIN DISCOLOURATION [None]
  - SKIN DISORDER [None]
  - SKIN HYPERPIGMENTATION [None]
  - SKIN HYPERTROPHY [None]
  - SKIN INDURATION [None]
  - SKIN PLAQUE [None]
  - SUBCUTANEOUS NODULE [None]
